FAERS Safety Report 23525451 (Version 1)
Quarter: 2024Q1

REPORT INFORMATION
  Report Type: Spontaneous
  Country: US (occurrence: US)
  Receive Date: 20240215
  Receipt Date: 20240215
  Transmission Date: 20240410
  Serious: Yes (Other)
  Sender: FDA-Public Use
  Company Number: US-Accord-406844

PATIENT
  Age: 52 Year
  Sex: Male

DRUGS (2)
  1. CARBOPLATIN [Suspect]
     Active Substance: CARBOPLATIN
     Indication: Transitional cell carcinoma recurrent
     Dosage: 4 CYCLES
  2. GEMCITABINE [Suspect]
     Active Substance: GEMCITABINE
     Indication: Transitional cell carcinoma recurrent
     Dosage: 800MG/M2, SYSTEMIC FOR 4 CYCLES

REACTIONS (4)
  - Pyelonephritis [Unknown]
  - Cellulitis [Unknown]
  - Anaemia [Unknown]
  - Thrombocytopenia [Unknown]
